FAERS Safety Report 7892899 (Version 4)
Quarter: 2018Q2

REPORT INFORMATION
  Report Type: Report from Study
  Country: JP (occurrence: JP)
  Receive Date: 20110411
  Receipt Date: 20180525
  Transmission Date: 20180711
  Serious: Yes (Other)
  Sender: FDA-Public Use
  Company Number: PHHY2009JP42768

PATIENT
  Age: 71 Year
  Sex: Female

DRUGS (10)
  1. TASIGNA [Suspect]
     Active Substance: NILOTINIB
     Indication: CHRONIC MYELOID LEUKAEMIA
     Dosage: 400 MG, QD
     Route: 048
     Dates: start: 20090411, end: 20090501
  2. TASIGNA [Suspect]
     Active Substance: NILOTINIB
     Dosage: 400 MG/DAY
     Route: 048
     Dates: start: 20101029, end: 20110103
  3. FLOMOX [Concomitant]
     Active Substance: CEFCAPENE PIVOXIL HYDROCHLORIDE HYDRATE
     Indication: PRODUCT USED FOR UNKNOWN INDICATION
     Dosage: 300 MG, UNK
     Route: 048
     Dates: start: 20090410, end: 20090412
  4. KENALOG [Concomitant]
     Active Substance: TRIAMCINOLONE ACETONIDE
     Indication: STOMATITIS
     Dosage: UNK
     Route: 048
     Dates: start: 20090410
  5. TASIGNA [Suspect]
     Active Substance: NILOTINIB
     Dosage: 600 MG/DAY
     Route: 048
     Dates: start: 20110104
  6. TASIGNA [Suspect]
     Active Substance: NILOTINIB
     Dosage: 400 MG/DAY
     Route: 048
     Dates: start: 20111011, end: 20120109
  7. TASIGNA [Suspect]
     Active Substance: NILOTINIB
     Dosage: 800 MG/DAY
     Route: 048
     Dates: start: 20110705, end: 20111010
  8. TASIGNA [Suspect]
     Active Substance: NILOTINIB
     Dosage: 600 MG/DAY
     Route: 048
     Dates: start: 20120110
  9. TASIGNA [Suspect]
     Active Substance: NILOTINIB
     Dosage: 200 MG, QD
     Route: 048
     Dates: start: 20100108, end: 20100329
  10. TASIGNA [Suspect]
     Active Substance: NILOTINIB
     Dosage: 200 MG, UNK
     Route: 048
     Dates: start: 20100330, end: 20101028

REACTIONS (8)
  - Platelet count decreased [Recovering/Resolving]
  - Bilirubin conjugated increased [Recovered/Resolved]
  - Rash [Recovering/Resolving]
  - Blood bilirubin increased [Recovered/Resolved]
  - Skin disorder [Unknown]
  - Neutrophil count decreased [Recovering/Resolving]
  - Hyperbilirubinaemia [Recovered/Resolved]
  - Rash [Recovering/Resolving]

NARRATIVE: CASE EVENT DATE: 20090424
